FAERS Safety Report 5252825-0 (Version None)
Quarter: 2007Q1

REPORT INFORMATION
  Report Type: 
  Country: None (occurrence: None)
  Receive Date: 20070227
  Receipt Date: 20070216
  Transmission Date: 20070707
  Serious: Yes (Hospitalization)
  Sender: FDA-Public Use
  Company Number: GXKR2007GB01752

PATIENT
  Sex: Female

DRUGS (7)
  1. METFORMIN HCL [Suspect]
     Dosage: 1000 MG, BID, UNKNOWN
  2. RIMONABANT (RIMONABANT) UNKNOWN [Suspect]
     Dosage: 20 MG, QD, ORAL
     Route: 048
  3. ASPIRIN [Concomitant]
  4. ATENOLOL [Concomitant]
  5. COAPROVEL (HYDROCHLOROTHIAZIDE, IRBESARTAN) UNKNOWN [Concomitant]
  6. LIPITOR (ATORVASTATIN CALCIUM) UNKNOWN [Concomitant]
  7. ROSIGLITAZONE (ROSIGLITAZONE) UNKNOWN [Concomitant]

REACTIONS (2)
  - RENAL FAILURE [None]
  - VOMITING [None]
